FAERS Safety Report 8896807 (Version 1)
Quarter: 2012Q4

REPORT INFORMATION
  Report Type: 
  Country: US (occurrence: US)
  Receive Date: 20121108
  Receipt Date: 20121108
  Transmission Date: 20130627
  Serious: No
  Sender: FDA-Public Use
  Company Number: US-ASTRAZENECA-2012SE82133

PATIENT
  Sex: Male

DRUGS (4)
  1. PULMICORT FLEXHALER [Suspect]
     Indication: ASTHMA
     Dosage: 180MCG,TWO TIMES A DAY
     Route: 055
  2. SEREVENT [Concomitant]
  3. SPIRIVA [Concomitant]
  4. XOLAIR [Concomitant]

REACTIONS (1)
  - Asthma [Unknown]
